FAERS Safety Report 5937798-7 (Version None)
Quarter: 2008Q4

REPORT INFORMATION
  Report Type: 
  Country: None (occurrence: None)
  Receive Date: 20081029
  Receipt Date: 20081020
  Transmission Date: 20090506
  Serious: Yes (Other)
  Sender: FDA-Public Use
  Company Number: 2008SP015304

PATIENT
  Age: 59 Year
  Sex: Female

DRUGS (6)
  1. INTRON A [Suspect]
     Indication: MALIGNANT MELANOMA
     Dosage: 40 MIU;IV;20 MIU;10MIU;TIW;7.5 MIU
     Dates: end: 20080602
  2. INTRON A [Suspect]
     Indication: MALIGNANT MELANOMA
     Dosage: 40 MIU;IV;20 MIU;10MIU;TIW;7.5 MIU
     Dates: end: 20080710
  3. INTRON A [Suspect]
     Indication: MALIGNANT MELANOMA
     Dosage: 40 MIU;IV;20 MIU;10MIU;TIW;7.5 MIU
     Dates: start: 20080428
  4. INTRON A [Suspect]
     Indication: MALIGNANT MELANOMA
     Dosage: 40 MIU;IV;20 MIU;10MIU;TIW;7.5 MIU
     Dates: start: 20080819
  5. AROPAX [Concomitant]
  6. ACETAMINOPHEN W/ CODEINE [Concomitant]

REACTIONS (15)
  - DECREASED APPETITE [None]
  - DIARRHOEA [None]
  - DYSGEUSIA [None]
  - DYSPHONIA [None]
  - FATIGUE [None]
  - FOOD INTOLERANCE [None]
  - INFLUENZA LIKE ILLNESS [None]
  - LETHARGY [None]
  - MASS [None]
  - OEDEMA PERIPHERAL [None]
  - PAIN [None]
  - PAIN IN EXTREMITY [None]
  - POLLAKIURIA [None]
  - TENDERNESS [None]
  - URINARY INCONTINENCE [None]
